FAERS Safety Report 13997256 (Version 3)
Quarter: 2019Q4

REPORT INFORMATION
  Report Type: Spontaneous
  Country: US (occurrence: US)
  Receive Date: 20170921
  Receipt Date: 20191011
  Transmission Date: 20200122
  Serious: Yes (Other)
  Sender: FDA-Public Use
  Company Number: US-ELI_LILLY_AND_COMPANY-US201709004599

PATIENT
  Sex: Male

DRUGS (12)
  1. CIALIS [Suspect]
     Active Substance: TADALAFIL
     Dosage: 20 MG, WEEKLY (1/W)
     Route: 048
     Dates: start: 20150528
  2. VIAGRA [Suspect]
     Active Substance: SILDENAFIL CITRATE
     Indication: ERECTILE DYSFUNCTION
     Dosage: 50 MG, WEEKLY (1/W)
     Route: 048
     Dates: start: 20150528
  3. VIAGRA [Suspect]
     Active Substance: SILDENAFIL CITRATE
     Dosage: 20 MG, WEEKLY (1/W)
     Route: 048
     Dates: start: 20160722, end: 20160722
  4. CIALIS [Suspect]
     Active Substance: TADALAFIL
     Indication: ERECTILE DYSFUNCTION
     Dosage: 5 MG, DAILY
     Route: 048
     Dates: start: 20081009
  5. LEVITRA [Concomitant]
     Active Substance: VARDENAFIL HYDROCHLORIDE
     Indication: ERECTILE DYSFUNCTION
     Dosage: 20 MG, WEEKLY (1/W)
     Dates: start: 20160428, end: 201607
  6. CIALIS [Suspect]
     Active Substance: TADALAFIL
     Dosage: 10 MG, WEEKLY (1/W)
     Route: 048
  7. FLOMAX MORNIFLUMATE [Concomitant]
     Indication: PROSTATE EXAMINATION ABNORMAL
     Dosage: 0.4 MG, DAILY
     Dates: start: 20140124, end: 20160428
  8. VIAGRA [Suspect]
     Active Substance: SILDENAFIL CITRATE
     Dosage: 20 MG, WEEKLY (1/W)
     Route: 048
     Dates: start: 20160119
  9. CIALIS [Suspect]
     Active Substance: TADALAFIL
     Dosage: 20 MG, WEEKLY (1/W)
     Route: 048
     Dates: start: 20151019
  10. CIALIS [Suspect]
     Active Substance: TADALAFIL
     Dosage: 5 MG, WEEKLY (1/W)
     Route: 048
     Dates: start: 20160708, end: 20160722
  11. CIALIS [Suspect]
     Active Substance: TADALAFIL
     Dosage: 5 MG, DAILY
     Route: 048
     Dates: start: 20130913
  12. CIALIS [Suspect]
     Active Substance: TADALAFIL
     Dosage: 5 MG, DAILY
     Route: 048
     Dates: start: 20150205

REACTIONS (2)
  - Malignant melanoma stage II [Unknown]
  - Prostatomegaly [Recovered/Resolved]

NARRATIVE: CASE EVENT DATE: 201603
